FAERS Safety Report 10196975 (Version 2)
Quarter: 2014Q2

REPORT INFORMATION
  Report Type: Spontaneous
  Country: US (occurrence: US)
  Receive Date: 20140527
  Receipt Date: 20140625
  Transmission Date: 20141212
  Serious: Yes (Hospitalization, Other)
  Sender: FDA-Public Use
  Company Number: US-PFIZER INC-2014142625

PATIENT
  Age: 60 Year
  Sex: Female
  Weight: 123 kg

DRUGS (10)
  1. LYRICA [Suspect]
     Indication: NEURALGIA
     Dosage: 75 MG, 2X/DAY
     Route: 048
  2. LYRICA [Suspect]
     Dosage: 75 MG ( 75MG TWO TIMES EVERY OTHER NIGHT), UNK
     Route: 048
     Dates: start: 201404
  3. LYRICA [Suspect]
     Dosage: 75 MG (ONCE A NIGHT), 1X/DAY
     Route: 048
     Dates: end: 201405
  4. ATENOLOL [Concomitant]
     Indication: SUPRAVENTRICULAR TACHYCARDIA
     Dosage: UNK
  5. LEVOTHYROXINE [Concomitant]
     Dosage: UNK
  6. ASPIRIN [Concomitant]
     Dosage: 325 MG, 1X/DAY
  7. TRAMADOL [Concomitant]
     Indication: PAIN
     Dosage: UNK
  8. VITAMIN A [Concomitant]
     Dosage: UNK
  9. ZINC [Concomitant]
     Dosage: UNK
  10. CYMBALTA [Concomitant]
     Dosage: UNK

REACTIONS (4)
  - Wound [Unknown]
  - Disease progression [Unknown]
  - Vision blurred [Recovered/Resolved]
  - Impaired driving ability [Recovered/Resolved]
